FAERS Safety Report 4978927-1 (Version None)
Quarter: 2006Q2

REPORT INFORMATION
  Report Type: 
  Country: None (occurrence: None)
  Receive Date: 20060417
  Receipt Date: 20060404
  Transmission Date: 20061013
  Serious: Yes (Other)
  Sender: FDA-Public Use
  Company Number: HQWYE642405APR06

PATIENT
  Age: 57 Year
  Sex: Female
  Weight: 88.53 kg

DRUGS (10)
  1. CYCLOSPORINE [Suspect]
     Indication: PROPHYLAXIS AGAINST TRANSPLANT REJECTION
     Dosage: 100 MG 2X PER 1 DAY
     Dates: start: 20051206
  2. MYCOPHENOLATE MOFETIL [Concomitant]
  3. LOPRESSOR [Concomitant]
  4. NORVASC [Concomitant]
  5. PEPCID [Concomitant]
  6. HYDROCHLOROTHIAZIDE [Concomitant]
  7. SYNTHROID [Concomitant]
  8. VYTORIN [Concomitant]
  9. ULTRAM [Concomitant]
  10. NEURONTIN [Concomitant]

REACTIONS (3)
  - BK VIRUS INFECTION [None]
  - DRUG INEFFECTIVE [None]
  - KIDNEY TRANSPLANT REJECTION [None]
